FAERS Safety Report 6431720-5 (Version None)
Quarter: 2009Q4

REPORT INFORMATION
  Report Type: 
  Country: None (occurrence: None)
  Receive Date: 20091103
  Receipt Date: 20091019
  Transmission Date: 20100525
  Serious: Yes (Hospitalization)
  Sender: FDA-Public Use
  Company Number: 02100-JPN-07-0330

PATIENT
  Age: 65 Year
  Sex: Male
  Weight: 58.5 kg

DRUGS (11)
  1. PLETAL [Suspect]
     Indication: CEREBRAL INFARCTION
     Dosage: SEE IMAGE
     Route: 048
     Dates: start: 20041020, end: 20070523
  2. PLETAL [Suspect]
     Indication: CEREBRAL INFARCTION
     Dosage: SEE IMAGE
     Route: 048
     Dates: start: 20070530, end: 20070603
  3. PLETAL [Suspect]
     Indication: CEREBRAL INFARCTION
     Dosage: SEE IMAGE
     Route: 048
     Dates: start: 20070612, end: 20070713
  4. PLETAL [Suspect]
     Indication: CEREBRAL INFARCTION
     Dosage: SEE IMAGE
     Route: 048
     Dates: start: 20070722, end: 20070813
  5. PLETAL [Suspect]
     Indication: CEREBRAL INFARCTION
     Dosage: SEE IMAGE
     Route: 048
     Dates: start: 20070821, end: 20070914
  6. PLETAL [Suspect]
     Indication: CEREBRAL INFARCTION
     Dosage: SEE IMAGE
     Route: 048
     Dates: start: 20070922, end: 20071013
  7. PLETAL [Suspect]
     Indication: CEREBRAL INFARCTION
     Dosage: SEE IMAGE
     Route: 048
     Dates: start: 20071022, end: 20080228
  8. PLETAL [Suspect]
     Indication: CEREBRAL INFARCTION
     Dosage: SEE IMAGE
     Route: 048
     Dates: start: 20080308
  9. NIVADIL (NILVADIPINE) [Concomitant]
  10. DIOVAN [Concomitant]
  11. LIPITOR [Concomitant]

REACTIONS (3)
  - CALCULUS URETERIC [None]
  - GASTRIC ADENOMA [None]
  - HAEMATURIA [None]
